FAERS Safety Report 21480079 (Version 1)
Quarter: 2022Q4

REPORT INFORMATION
  Report Type: Spontaneous
  Country: JP (occurrence: JP)
  Receive Date: 20221019
  Receipt Date: 20221019
  Transmission Date: 20230113
  Serious: Yes (Other)
  Sender: FDA-Public Use
  Company Number: JP-OTSUKA-2022_048429AA

PATIENT
  Age: 47 Year
  Sex: Male
  Weight: 83 kg

DRUGS (11)
  1. TOLVAPTAN [Suspect]
     Active Substance: TOLVAPTAN
     Indication: Diuretic therapy
     Dosage: 16MG/DAY
     Route: 041
  2. FUROSEMIDE [Concomitant]
     Active Substance: FUROSEMIDE
     Indication: Diuretic therapy
     Dosage: 80MG/DAY
     Route: 041
  3. FUROSEMIDE [Concomitant]
     Active Substance: FUROSEMIDE
     Dosage: 100MG/DAY
     Route: 041
  4. FUROSEMIDE [Concomitant]
     Active Substance: FUROSEMIDE
     Dosage: 80MG/DAY
     Route: 041
  5. FUROSEMIDE [Concomitant]
     Active Substance: FUROSEMIDE
     Dosage: 60MG/DAY
     Route: 041
  6. FUROSEMIDE [Concomitant]
     Active Substance: FUROSEMIDE
     Dosage: 20MG/DAY
     Route: 041
  7. CARPERITIDE [Concomitant]
     Active Substance: CARPERITIDE
     Indication: Diuretic therapy
     Dosage: 0.023GAMMA/DAY
     Route: 065
  8. CARPERITIDE [Concomitant]
     Active Substance: CARPERITIDE
     Dosage: 0.022GAMMA/DAY
     Route: 065
  9. CARPERITIDE [Concomitant]
     Active Substance: CARPERITIDE
     Dosage: 0.046GAMMA/DAY
     Route: 065
  10. CARPERITIDE [Concomitant]
     Active Substance: CARPERITIDE
     Dosage: 0.024GAMMA/DAY
     Route: 065
  11. CARPERITIDE [Concomitant]
     Active Substance: CARPERITIDE
     Dosage: 0.012GAMMA/DAY
     Route: 065

REACTIONS (3)
  - Blood sodium increased [Recovered/Resolved]
  - Blood creatinine increased [Unknown]
  - Product use in unapproved indication [Unknown]
